FAERS Safety Report 5188364-5 (Version None)
Quarter: 2006Q4

REPORT INFORMATION
  Report Type: 
  Country: None (occurrence: None)
  Receive Date: 20061221
  Receipt Date: 20061215
  Transmission Date: 20070319
  Serious: Yes (Death)
  Sender: FDA-Public Use
  Company Number: US-BRISTOL-MYERS SQUIBB COMPANY-13614540

PATIENT
  Age: 34 Year
  Sex: Male

DRUGS (1)
  1. CEENU [Suspect]

REACTIONS (1)
  - DEATH [None]
